FAERS Safety Report 8115048-3 (Version None)
Quarter: 2012Q1

REPORT INFORMATION
  Report Type: 
  Country: None (occurrence: None)
  Receive Date: 20120206
  Receipt Date: 20120203
  Transmission Date: 20120608
  Serious: Yes (Death)
  Sender: FDA-Public Use
  Company Number: BR-B.I. PHARMACEUTICALS,INC./RIDGEFIELD-2012-BR-00133BR

PATIENT
  Sex: Female

DRUGS (7)
  1. THEOPHYLLINE [Concomitant]
     Indication: CHRONIC OBSTRUCTIVE PULMONARY DISEASE
  2. FORASEQ  12400 [Concomitant]
     Indication: CHRONIC OBSTRUCTIVE PULMONARY DISEASE
  3. CIPROFLOXACINO [Concomitant]
     Indication: PNEUMONIA
  4. PREDINISONA [Concomitant]
     Indication: CHRONIC OBSTRUCTIVE PULMONARY DISEASE
  5. LOSARTAN POTASSIUM [Concomitant]
     Indication: HYPERTENSION
  6. TREATMENT FOR HIGH PRESSURE [Concomitant]
     Indication: HYPERTENSION
  7. SPIRIVA RESPIMAT [Suspect]
     Indication: CHRONIC OBSTRUCTIVE PULMONARY DISEASE
     Dosage: 5 MCG
     Route: 055
     Dates: start: 20100101, end: 20111104

REACTIONS (1)
  - ACUTE RESPIRATORY FAILURE [None]
